FAERS Safety Report 10508513 (Version 1)
Quarter: 2014Q4

REPORT INFORMATION
  Report Type: Spontaneous
  Country: US (occurrence: None)
  Receive Date: 20141008
  Receipt Date: 20141008
  Transmission Date: 20150528
  Serious: Yes (Life-Threatening)
  Sender: FDA-Public Use
  Company Number: None

PATIENT
  Age: 73 Year
  Sex: Male
  Weight: 92.5 kg

DRUGS (1)
  1. FOSINOPRIL [Suspect]
     Active Substance: FOSINOPRIL
     Indication: HYPERTENSION
     Dosage: 40 MG  EVERY DAY  PO?~11/16/2012 THRU ~02/28/2014
     Route: 048
     Dates: start: 20121116, end: 20140228

REACTIONS (1)
  - Angioedema [None]

NARRATIVE: CASE EVENT DATE: 20140227
